FAERS Safety Report 16800916 (Version 1)
Quarter: 2019Q3

REPORT INFORMATION
  Report Type: Spontaneous
  Country: US (occurrence: US)
  Receive Date: 20190912
  Receipt Date: 20190912
  Transmission Date: 20191005
  Serious: No
  Sender: FDA-Public Use
  Company Number: US-ASTELLAS-2019US006185

PATIENT
  Sex: Male

DRUGS (1)
  1. XTANDI [Suspect]
     Active Substance: ENZALUTAMIDE
     Indication: HORMONE THERAPY
     Route: 065

REACTIONS (3)
  - Tongue discomfort [Unknown]
  - Tongue erythema [Unknown]
  - Swollen tongue [Unknown]

NARRATIVE: CASE EVENT DATE: 201902
